FAERS Safety Report 8379548-3 (Version None)
Quarter: 2012Q2

REPORT INFORMATION
  Report Type: 
  Country: None (occurrence: None)
  Receive Date: 20120523
  Receipt Date: 20120514
  Transmission Date: 20120825
  Serious: Yes (Other)
  Sender: FDA-Public Use
  Company Number: US-NOVOPROD-351537

PATIENT
  Age: 77 Year
  Sex: Female

DRUGS (1)
  1. NOVOLOG MIX 70/30 [Suspect]
     Indication: TYPE 2 DIABETES MELLITUS
     Dosage: 22 U, QD
     Route: 058

REACTIONS (3)
  - DIABETIC RETINOPATHY [None]
  - EYE HAEMORRHAGE [None]
  - INJECTION SITE HAEMATOMA [None]
